FAERS Safety Report 6466552-5 (Version None)
Quarter: 2009Q4

REPORT INFORMATION
  Report Type: 
  Country: None (occurrence: None)
  Receive Date: 20091201
  Receipt Date: 20091201
  Transmission Date: 20100525
  Serious: Yes (Life-Threatening)
  Sender: FDA-Public Use
  Company Number: None

PATIENT
  Sex: Male
  Weight: 100.5 kg

DRUGS (1)
  1. CYMBALTA [Suspect]
     Dosage: 30 MG ONCE A DAY ORAL
     Route: 048

REACTIONS (10)
  - AGITATION [None]
  - DIZZINESS [None]
  - DRUG WITHDRAWAL SYNDROME [None]
  - ECONOMIC PROBLEM [None]
  - IMPAIRED SELF-CARE [None]
  - INAPPROPRIATE SCHEDULE OF DRUG ADMINISTRATION [None]
  - LOSS OF EMPLOYMENT [None]
  - MALAISE [None]
  - PARAESTHESIA [None]
  - TREATMENT NONCOMPLIANCE [None]
